FAERS Safety Report 9399047 (Version 4)
Quarter: 2014Q1

REPORT INFORMATION
  Report Type: Report from Study
  Country: GB (occurrence: GB)
  Receive Date: 20130715
  Receipt Date: 20140116
  Transmission Date: 20141002
  Serious: Yes (Death, Hospitalization, Other)
  Sender: FDA-Public Use
  Company Number: GB-ROCHE-1248126

PATIENT
  Age: 87 Year
  Sex: Male

DRUGS (14)
  1. RANIBIZUMAB [Suspect]
     Indication: AGE-RELATED MACULAR DEGENERATION
     Dosage: LAST DOSE PRIOR TO SAE WAS ON 16/NOV/2011.
     Route: 050
     Dates: start: 20100705, end: 20111116
  2. ANASTROZOLE [Concomitant]
     Route: 065
     Dates: start: 201107
  3. ANASTROZOLE [Concomitant]
     Route: 065
     Dates: start: 20111202
  4. TAMOXIFEN [Concomitant]
     Route: 065
     Dates: start: 201010
  5. TAMOXIFEN [Concomitant]
     Route: 065
     Dates: start: 20111202
  6. ATENOLOL [Concomitant]
     Route: 065
     Dates: start: 20040705
  7. ATENOLOL [Concomitant]
     Route: 065
     Dates: start: 20111202
  8. DIGOXIN [Concomitant]
     Route: 065
     Dates: start: 20100420
  9. DIGOXIN [Concomitant]
     Route: 065
     Dates: start: 20111202
  10. BENDROFLUMETHIAZIDE [Concomitant]
     Route: 065
     Dates: start: 20040803
  11. BENDROFLUMETHIAZIDE [Concomitant]
     Route: 065
     Dates: start: 20111202
  12. WARFARIN [Concomitant]
     Route: 065
     Dates: start: 20100820
  13. WARFARIN [Concomitant]
     Route: 065
     Dates: start: 20111202
  14. WARFARIN [Concomitant]
     Route: 065
     Dates: start: 20111205

REACTIONS (5)
  - Malignant neoplasm progression [Fatal]
  - Metastases to bone marrow [Fatal]
  - General physical health deterioration [Fatal]
  - Dyspnoea [Unknown]
  - Epistaxis [Unknown]
